FAERS Safety Report 19342233 (Version 1)
Quarter: 2021Q2

REPORT INFORMATION
  Report Type: Spontaneous
  Country: DE (occurrence: DE)
  Receive Date: 20210530
  Receipt Date: 20210530
  Transmission Date: 20210717
  Serious: Yes (Congenital Anomaly, Other)
  Sender: FDA-Public Use
  Company Number: DE-BAUSCH-BL-2021-017805

PATIENT
  Age: 1 Day
  Sex: Female
  Weight: 2.99 kg

DRUGS (6)
  1. VENLAFAXINE [Suspect]
     Active Substance: VENLAFAXINE HYDROCHLORIDE
     Indication: DEPRESSION
     Dosage: 300MG/D (UP TO 37.5)
     Route: 064
     Dates: start: 20190608, end: 20200222
  2. ESCITALOPRAM [Concomitant]
     Active Substance: ESCITALOPRAM OXALATE
     Indication: DEPRESSION
     Dosage: 15MG/D (FATHER)
     Route: 064
     Dates: start: 20190608, end: 20200229
  3. MIRTAZAPIN [Concomitant]
     Active Substance: MIRTAZAPINE
     Indication: DEPRESSION
     Dosage: 15 MG/D (FATHER)
     Route: 064
     Dates: start: 20190608, end: 20200229
  4. PANTOPRAZOLE [Concomitant]
     Active Substance: PANTOPRAZOLE
     Indication: GASTRITIS PROPHYLAXIS
     Route: 064
     Dates: start: 20190608, end: 20200229
  5. AMOXICILLIN. [Concomitant]
     Active Substance: AMOXICILLIN
     Indication: PAROTITIS
     Route: 064
  6. AMOXICILLIN. [Concomitant]
     Active Substance: AMOXICILLIN
     Indication: URINARY TRACT INFECTION
     Route: 064

REACTIONS (7)
  - Respiratory disorder neonatal [Recovered/Resolved]
  - Foetal exposure during pregnancy [Unknown]
  - Retrognathia [Unknown]
  - Congenital melanocytic naevus [Unknown]
  - Talipes [Unknown]
  - Hypotonia neonatal [Unknown]
  - Neck deformity [Unknown]

NARRATIVE: CASE EVENT DATE: 20200229
